FAERS Safety Report 24073221 (Version 1)
Quarter: 2024Q3

REPORT INFORMATION
  Report Type: Report from Study
  Country: US (occurrence: US)
  Receive Date: 20240710
  Receipt Date: 20240710
  Transmission Date: 20241017
  Serious: Yes (Hospitalization)
  Sender: ABBVIE
  Company Number: US-ABBVIE-5792210

PATIENT
  Sex: Female
  Weight: 79 kg

DRUGS (4)
  1. HUMIRA [Suspect]
     Active Substance: ADALIMUMAB
     Indication: Psoriatic arthropathy
     Route: 058
     Dates: end: 2020
  2. HUMIRA [Suspect]
     Active Substance: ADALIMUMAB
     Route: 058
  3. ADDERALL [Concomitant]
     Active Substance: AMPHETAMINE ASPARTATE\AMPHETAMINE SULFATE\DEXTROAMPHETAMINE SACCHARATE\DEXTROAMPHETAMINE SULFATE
     Indication: Attention deficit hyperactivity disorder
     Dosage: FORM STRENGTH WAS 20 MILLIGRAM
     Route: 048
     Dates: start: 2016
  4. ARMOUR THYROID [Concomitant]
     Active Substance: THYROID, PORCINE
     Indication: Hypothyroidism
     Dosage: FORM STRENGTH WAS 65 MILLIGRAM
     Route: 048
     Dates: start: 1995

REACTIONS (6)
  - Muscular weakness [Recovered/Resolved]
  - Loss of personal independence in daily activities [Unknown]
  - Gait disturbance [Recovered/Resolved]
  - Migraine [Recovered/Resolved]
  - Dizziness [Recovered/Resolved]
  - Facial paralysis [Recovered/Resolved]

NARRATIVE: CASE EVENT DATE: 20180101
